FAERS Safety Report 21584269 (Version 1)
Quarter: 2022Q4

REPORT INFORMATION
  Report Type: Spontaneous
  Country: US (occurrence: US)
  Receive Date: 20221111
  Receipt Date: 20221111
  Transmission Date: 20230113
  Serious: Yes (Life-Threatening, Hospitalization)
  Sender: FDA-Public Use
  Company Number: US-MYLANLABS-2022M1124310

PATIENT
  Age: 39 Year
  Sex: Male

DRUGS (12)
  1. LOPERAMIDE [Suspect]
     Active Substance: LOPERAMIDE
     Indication: Product used for unknown indication
     Dosage: UNK
     Route: 048
  2. LOPERAMIDE [Suspect]
     Active Substance: LOPERAMIDE
     Dosage: 800 MILLIGRAM, QD
     Route: 048
  3. LIDOCAINE [Suspect]
     Active Substance: LIDOCAINE
     Indication: Arrhythmia
     Dosage: UNK
     Route: 042
  4. BUPRENORPHINE [Suspect]
     Active Substance: BUPRENORPHINE
     Indication: Drug use disorder
     Dosage: 32 MILLIGRAM
     Route: 060
  5. OXYCODONE [Suspect]
     Active Substance: OXYCODONE
     Indication: Back pain
     Dosage: 100 MILLIGRAM, QD
     Route: 065
  6. BUPRENORPHINE [Concomitant]
     Active Substance: BUPRENORPHINE
     Indication: Drug withdrawal syndrome
     Dosage: 1.8 MILLIGRAM
     Route: 042
  7. MAGNESIUM CITRATE [Concomitant]
     Active Substance: MAGNESIUM CITRATE
     Indication: Constipation
     Dosage: UNK
     Route: 065
  8. ASCORBIC ACID [Concomitant]
     Active Substance: ASCORBIC ACID
     Indication: Constipation
     Dosage: UNK
     Route: 065
  9. CLONIDINE [Concomitant]
     Active Substance: CLONIDINE
     Indication: Drug use disorder
     Dosage: UNK
     Route: 065
  10. DIAZEPAM [Concomitant]
     Active Substance: DIAZEPAM
     Indication: Drug use disorder
     Dosage: UNK
     Route: 065
  11. BUPRENORPHINE [Concomitant]
     Active Substance: BUPRENORPHINE
     Indication: Drug use disorder
     Dosage: 32 MILLIGRAM
     Route: 060
  12. BUPRENORPHINE [Concomitant]
     Active Substance: BUPRENORPHINE
     Dosage: 8 MILLIGRAM, Q8H
     Route: 060

REACTIONS (7)
  - Drug ineffective [Unknown]
  - Arrhythmia [Recovered/Resolved]
  - Intentional product misuse [Unknown]
  - Overdose [Unknown]
  - Cardiac arrest [Recovered/Resolved]
  - Withdrawal syndrome [Recovered/Resolved]
  - Condition aggravated [Recovered/Resolved]
